FAERS Safety Report 24444832 (Version 2)
Quarter: 2024Q4

REPORT INFORMATION
  Report Type: Report from Study
  Country: US (occurrence: US)
  Receive Date: 20241016
  Receipt Date: 20241017
  Transmission Date: 20250115
  Serious: No
  Sender: ROCHE
  Company Number: US-ROCHE-2979704

PATIENT
  Age: 58 Year
  Sex: Female

DRUGS (11)
  1. RITUXAN [Suspect]
     Active Substance: RITUXIMAB
     Indication: Myelitis transverse
     Dosage: 08/DEC/2021, ANTICIPATED DATE;12/09/2022, DATE OF SERVICE:(08/JUN/2022, 27/FEB/2023)? FREQUENCY TEXT
     Route: 042
  2. RITUXAN [Suspect]
     Active Substance: RITUXIMAB
     Indication: Demyelination
  3. RITUXAN [Suspect]
     Active Substance: RITUXIMAB
     Indication: Multiple sclerosis
  4. ALBUTEROL [Concomitant]
     Active Substance: ALBUTEROL
  5. LIORESAL [Concomitant]
     Active Substance: BACLOFEN
  6. BUMEX [Concomitant]
     Active Substance: BUMETANIDE
  7. WELLBUTRIN [Concomitant]
     Active Substance: BUPROPION HYDROCHLORIDE
  8. VOLTAREN [Concomitant]
     Active Substance: DICLOFENAC SODIUM
  9. FLONASE [Concomitant]
     Active Substance: FLUTICASONE PROPIONATE
  10. GABA [GAMMA-AMINOBUTYRIC ACID] [Concomitant]
  11. AVAPRO [Concomitant]
     Active Substance: IRBESARTAN

REACTIONS (3)
  - Off label use [Unknown]
  - No adverse event [Unknown]
  - Product prescribing error [Unknown]
